FAERS Safety Report 8230291-0 (Version None)
Quarter: 2012Q1

REPORT INFORMATION
  Report Type: 
  Country: None (occurrence: None)
  Receive Date: 20120323
  Receipt Date: 20111201
  Transmission Date: 20120608
  Serious: Yes (Hospitalization)
  Sender: FDA-Public Use
  Company Number: US-CELGENEUS-163-21880-11111932

PATIENT
  Sex: Female
  Weight: 68.4 kg

DRUGS (14)
  1. IBUPROFEN [Concomitant]
     Route: 065
  2. FLONASE [Concomitant]
     Dosage: .05
     Route: 045
  3. PLAVIX [Concomitant]
     Dosage: 75 MILLIGRAM
     Route: 065
  4. REVLIMID [Suspect]
     Dosage: 20 MILLIGRAM
     Route: 048
     Dates: start: 20111025, end: 20111111
  5. OXYCODONE HCL [Concomitant]
     Dosage: 5
     Route: 065
  6. POTASSIUM CHLORIDE [Concomitant]
     Dosage: 20 MILLIGRAM
     Route: 048
  7. ASPIRIN [Concomitant]
     Dosage: 81 MILLIGRAM
     Route: 065
  8. FENOFEXADINE [Concomitant]
     Dosage: 180 MILLIGRAM
     Route: 065
  9. IMMUNE GLOBULIN INTRAVENOUS (HUMAN) [Concomitant]
     Route: 041
     Dates: start: 20111102
  10. REVLIMID [Suspect]
     Dosage: 20 MILLIGRAM
     Route: 048
     Dates: start: 20060710
  11. PROTONIX [Concomitant]
     Dosage: 40 MILLIGRAM
     Route: 065
  12. CALCIUM +D [Concomitant]
     Route: 065
  13. ISOSORBIDE DINITRATE [Concomitant]
     Dosage: 30 MILLIGRAM
     Route: 065
  14. CARVEDILOL [Concomitant]
     Dosage: 12.5 MILLIGRAM
     Route: 065

REACTIONS (2)
  - DIARRHOEA [None]
  - BLOOD ELECTROLYTES ABNORMAL [None]
